FAERS Safety Report 10195923 (Version 4)
Quarter: 2016Q2

REPORT INFORMATION
  Report Type: Spontaneous
  Country: FR (occurrence: FR)
  Receive Date: 20140527
  Receipt Date: 20160530
  Transmission Date: 20160815
  Serious: Yes (Hospitalization, Other)
  Sender: FDA-Public Use
  Company Number: FR-JNJFOC-20140506354

PATIENT
  Age: 39 Year
  Sex: Male

DRUGS (6)
  1. TERCIAN [Suspect]
     Active Substance: CYAMEMAZINE
     Indication: PSYCHOTIC DISORDER
     Dosage: VARIABLE DOSAGE BETWEEN 50 AND 200DROPS
     Route: 048
     Dates: start: 20130901, end: 20130920
  2. LEPTICUR [Suspect]
     Active Substance: TROPATEPINE HYDROCHLORIDE
     Indication: PSYCHOTIC DISORDER
     Route: 048
     Dates: start: 20130901, end: 20140217
  3. LOXAPAC [Suspect]
     Active Substance: LOXAPINE SUCCINATE
     Indication: PSYCHOTIC DISORDER
     Route: 048
     Dates: start: 20070421, end: 20140312
  4. HALDOL [Suspect]
     Active Substance: HALOPERIDOL
     Indication: PSYCHOTIC DISORDER
     Dosage: SOMETIMES
     Route: 030
  5. THERALENE [Suspect]
     Active Substance: TRIMEPRAZINE
     Indication: PSYCHOTIC DISORDER
     Route: 048
     Dates: start: 20131030, end: 20140217
  6. HALDOL [Suspect]
     Active Substance: HALOPERIDOL
     Indication: PSYCHOTIC DISORDER
     Route: 048
     Dates: start: 20020626, end: 20140217

REACTIONS (15)
  - Hydronephrosis [Recovering/Resolving]
  - Ejection fraction decreased [Unknown]
  - Urinary tract obstruction [Unknown]
  - Acute kidney injury [Recovering/Resolving]
  - Congestive cardiomyopathy [Unknown]
  - Tachycardia [Unknown]
  - Oxygen saturation decreased [Unknown]
  - Cardiac disorder [Unknown]
  - Acute pulmonary oedema [Unknown]
  - Pneumonia [Unknown]
  - Acute kidney injury [Recovering/Resolving]
  - Urinary retention [Unknown]
  - Hypertension [Unknown]
  - Hypertonic bladder [Unknown]
  - Anaemia [Unknown]

NARRATIVE: CASE EVENT DATE: 20140122
